FAERS Safety Report 22803321 (Version 3)
Quarter: 2024Q1

REPORT INFORMATION
  Report Type: Report from Study
  Country: GB (occurrence: GB)
  Receive Date: 20230809
  Receipt Date: 20240316
  Transmission Date: 20240410
  Serious: Yes (Other)
  Sender: FDA-Public Use
  Company Number: GB-UCBSA-2022066468

PATIENT
  Sex: Female

DRUGS (1)
  1. CERTOLIZUMAB PEGOL [Suspect]
     Active Substance: CERTOLIZUMAB PEGOL
     Indication: Rheumatoid arthritis
     Dosage: 200 MILLIGRAM, EV 2 WEEKS(QOW), EOW
     Route: 058

REACTIONS (5)
  - Rheumatoid arthritis [Unknown]
  - Pain [Unknown]
  - Product dose omission issue [Unknown]
  - Therapy interrupted [Unknown]
  - Product prescribing issue [Unknown]
